FAERS Safety Report 18266050 (Version 1)
Quarter: 2020Q3

REPORT INFORMATION
  Report Type: Spontaneous
  Country: NO (occurrence: NO)
  Receive Date: 20200915
  Receipt Date: 20200915
  Transmission Date: 20201103
  Serious: Yes (Other)
  Sender: FDA-Public Use
  Company Number: NO-SA-2020SA248677

PATIENT

DRUGS (2)
  1. LEMTRADA [Suspect]
     Active Substance: ALEMTUZUMAB
     Dosage: 12 MG/100 MG NACL. 25 ML/HOUR FOR 4 HOURS 3 CONSECUTIVE DAYS.
     Route: 041
     Dates: start: 20181217, end: 20181219
  2. LEMTRADA [Suspect]
     Active Substance: ALEMTUZUMAB
     Indication: MULTIPLE SCLEROSIS
     Dosage: TREATED WITH LEMTRADA ACCORDING TO STANDARD PROTOCOL 5 CONSECUTIVE DAYS IN DECEMBER 2017
     Route: 041
     Dates: start: 201712, end: 201712

REACTIONS (2)
  - Pain in extremity [Unknown]
  - Leukoencephalopathy [Recovering/Resolving]

NARRATIVE: CASE EVENT DATE: 202008
